FAERS Safety Report 16976927 (Version 2)
Quarter: 2021Q4

REPORT INFORMATION
  Report Type: Spontaneous
  Country: CA (occurrence: CA)
  Receive Date: 20191030
  Receipt Date: 20211030
  Transmission Date: 20220303
  Serious: Yes (Life-Threatening, Other)
  Sender: FDA-Public Use
  Company Number: CA-AUROBINDO-AUR-APL-2019-069075

PATIENT
  Age: 63 Year
  Sex: Female
  Weight: 83.9 kg

DRUGS (1)
  1. VALSARTAN [Suspect]
     Active Substance: VALSARTAN
     Indication: Blood pressure measurement
     Dosage: 80 MILLIGRAM, ONCE A DAY
     Route: 048

REACTIONS (7)
  - Nephrectomy [Unknown]
  - Renal cancer [Unknown]
  - Recalled product administered [Unknown]
  - Psychotic disorder [Unknown]
  - Renal disorder [Unknown]
  - Thyroid mass [Unknown]
  - Product contamination chemical [Unknown]
